FAERS Safety Report 18330059 (Version 1)
Quarter: 2020Q3

REPORT INFORMATION
  Report Type: Spontaneous
  Country: AU (occurrence: AU)
  Receive Date: 20200930
  Receipt Date: 20200930
  Transmission Date: 20201103
  Serious: Yes (Hospitalization, Other)
  Sender: FDA-Public Use
  Company Number: AU-MACLEODS PHARMACEUTICALS US LTD-MAC2020028204

PATIENT

DRUGS (3)
  1. OLANZAPINE. [Suspect]
     Active Substance: OLANZAPINE
     Indication: SCHIZOPHRENIA
     Dosage: UNK
     Route: 065
  2. QUETIAPINE. [Suspect]
     Active Substance: QUETIAPINE
     Indication: SCHIZOPHRENIA
     Dosage: UNK
     Route: 065
     Dates: start: 2005
  3. QUETIAPINE. [Suspect]
     Active Substance: QUETIAPINE
     Dosage: 400 MILLIGRAM, DOSE GRADUALLY TITRATED
     Route: 065
     Dates: start: 2006

REACTIONS (9)
  - Influenza [Unknown]
  - Agranulocytosis [Recovering/Resolving]
  - Leukopenia [Recovered/Resolved]
  - Neutropenia [Unknown]
  - Weight increased [Unknown]
  - Thrombocytopenia [Unknown]
  - Pancytopenia [Recovering/Resolving]
  - Respiratory tract infection [Recovering/Resolving]
  - Parainfluenzae virus infection [Unknown]

NARRATIVE: CASE EVENT DATE: 2006
